FAERS Safety Report 9220419 (Version 1)
Quarter: 2013Q2

REPORT INFORMATION
  Report Type: Report from Study
  Country: US (occurrence: US)
  Receive Date: 20130409
  Receipt Date: 20130409
  Transmission Date: 20140414
  Serious: Yes (Death)
  Sender: FDA-Public Use
  Company Number: US-BAXTER-2013BAX013336

PATIENT
  Sex: 0

DRUGS (3)
  1. CYCLOPHOSPHAMIDE FOR INJECTION, USP [Suspect]
     Indication: LYMPHOMA
     Dosage: 2.5 G/M2
     Route: 065
  2. BUSULFAN [Suspect]
     Indication: LYMPHOMA
     Route: 042
  3. ETOPOSIDE [Suspect]
     Indication: LYMPHOMA
     Dosage: 1.4 G/M2
     Route: 065

REACTIONS (1)
  - Transplant rejection [Fatal]
